FAERS Safety Report 23449240 (Version 1)
Quarter: 2024Q1

REPORT INFORMATION
  Report Type: Spontaneous
  Country: GB (occurrence: GB)
  Receive Date: 20240129
  Receipt Date: 20240129
  Transmission Date: 20240410
  Serious: Yes (Hospitalization, Other)
  Sender: FDA-Public Use
  Company Number: GB-MHRA-TPP37168891C13802238YC1704204030254

PATIENT
  Age: 83 Year
  Sex: Female
  Weight: 89 kg

DRUGS (17)
  1. NITROFURANTOIN [Suspect]
     Active Substance: NITROFURANTOIN
     Indication: Ill-defined disorder
     Dosage: UNK
     Route: 065
     Dates: start: 20231012
  2. ALENDRONIC ACID [Concomitant]
     Active Substance: ALENDRONIC ACID
     Indication: Ill-defined disorder
     Dosage: 1 DOSAGE FORM, EVERY WEEK (ONE TABLET TO BE TAKEN WEEKLY FOR OSTEOPOROSIS....)
     Route: 065
     Dates: start: 20231017
  3. ALENDRONIC ACID [Concomitant]
     Active Substance: ALENDRONIC ACID
     Indication: Osteoporosis
  4. ALPHAGAN P [Concomitant]
     Active Substance: BRIMONIDINE TARTRATE
     Indication: Ill-defined disorder
     Dosage: 2 GTT DROPS, 3 TIMES A DAY (ONE DROP IN BOTH EYES 3 TIMES A DAY)
     Route: 065
     Dates: start: 20220510
  5. ASPIRIN [Concomitant]
     Active Substance: ASPIRIN
     Indication: Ill-defined disorder
     Dosage: 1 DOSAGE FORM, ONCE A DAY (ONE TABLET TO BE TAKEN ONCE A DAY  TO HELP PREV...)
     Route: 065
     Dates: start: 20231017
  6. ATORVASTATIN [Concomitant]
     Active Substance: ATORVASTATIN
     Indication: Ill-defined disorder
     Dosage: 1 DOSAGE FORM, ONCE A DAY (ONE TABLET TO BE TAKEN DAILY TO LOWER CHOLESTER...)
     Route: 065
     Dates: start: 20231027
  7. ATORVASTATIN [Concomitant]
     Active Substance: ATORVASTATIN
     Indication: Hypercholesterolaemia
  8. FERROUS SULFATE [Concomitant]
     Active Substance: FERROUS SULFATE
     Indication: Ill-defined disorder
     Dosage: 1 DOSAGE FORM, ONCE A DAY (TAKE ONE DAILY AT BREAKFAST)
     Route: 065
     Dates: start: 20231017
  9. FOLIC ACID [Concomitant]
     Active Substance: FOLIC ACID
     Indication: Ill-defined disorder
     Dosage: 1 DOSAGE FORM, ONCE A DAY (ONE TABLET TO BE TAKEN ONCE A DAY)
     Route: 065
     Dates: start: 20231017
  10. FUROSEMIDE [Concomitant]
     Active Substance: FUROSEMIDE
     Indication: Ill-defined disorder
     Dosage: 1 DOSAGE FORM, ONCE A DAY (ONE TABLET TO BE TAKEN ONCE A DAY IN THE MORNIN...)
     Route: 065
     Dates: start: 20231017
  11. INDAPAMIDE [Concomitant]
     Active Substance: INDAPAMIDE
     Indication: Ill-defined disorder
     Dosage: 1 DOSAGE FORM, ONCE A DAY (ONE  TABLET TO BE TAKEN ONCE A DAY IN THE MORNI...)
     Route: 065
     Dates: start: 20231017
  12. KELHALE [Concomitant]
     Indication: Ill-defined disorder
     Dosage: UNK UNK, TWO TIMES A DAY (INHALE ONE-TWO PUFFS TWICE A DAY. (PLEASE RETUR...)
     Route: 065
     Dates: start: 20231017
  13. LATANOPROST [Concomitant]
     Active Substance: LATANOPROST
     Indication: Ill-defined disorder
     Dosage: 2 GTT DROPS, ONCE A DAY (INSTIL ONE DROP AT NIGHT TO BOTH EYES TO TREAT ...)
     Route: 065
     Dates: start: 20231017
  14. LOSARTAN [Concomitant]
     Active Substance: LOSARTAN
     Indication: Ill-defined disorder
     Dosage: 1 DOSAGE FORM, TWO TIMES A DAY (TAKE ONE TABLET TWICE DAILY)
     Route: 065
     Dates: start: 20231017
  15. MONTELUKAST [Concomitant]
     Active Substance: MONTELUKAST SODIUM
     Indication: Ill-defined disorder
     Dosage: 1 DOSAGE FORM, ONCE A DAY (ONE TABLET  TO BE TAKEN AT NIGHT)
     Route: 065
     Dates: start: 20231017
  16. PREGABALIN [Concomitant]
     Active Substance: PREGABALIN
     Indication: Ill-defined disorder
     Dosage: 1 DOSAGE FORM, ONCE A DAY (ONE CAPSULE TO BE TAKEN DAILY)
     Route: 065
     Dates: start: 20231017
  17. ALBUTEROL [Concomitant]
     Active Substance: ALBUTEROL
     Indication: Ill-defined disorder
     Dosage: UNK (INHALE ONE OR TWO PUFFS AS NEEDED TO RELIEVE BR...)
     Route: 065
     Dates: start: 20220510

REACTIONS (1)
  - Haemolysis [Recovered/Resolved]

NARRATIVE: CASE EVENT DATE: 20240102
